FAERS Safety Report 5320488-1 (Version None)
Quarter: 2007Q2

REPORT INFORMATION
  Report Type: 
  Country: None (occurrence: None)
  Receive Date: 20070509
  Receipt Date: 20070502
  Transmission Date: 20071010
  Serious: Yes (Other)
  Sender: FDA-Public Use
  Company Number: BR-JNJFOC-20070501241

PATIENT
  Age: 26 Year
  Sex: Female
  Weight: 70 kg

DRUGS (3)
  1. LEVAQUIN [Suspect]
     Indication: SINUSITIS
     Route: 048
  2. ALLEGRA [Concomitant]
     Indication: SINUSITIS
     Route: 048
  3. COUGH MEDICATION [Concomitant]
     Indication: COUGH
     Route: 048

REACTIONS (5)
  - CHEST PAIN [None]
  - DYSPNOEA [None]
  - FEELING COLD [None]
  - HEART RATE INCREASED [None]
  - INSOMNIA [None]
